APPROVED DRUG PRODUCT: VANCOMYCIN HYDROCHLORIDE
Active Ingredient: VANCOMYCIN HYDROCHLORIDE
Strength: EQ 1GM BASE/VIAL
Dosage Form/Route: INJECTABLE;INJECTION
Application: A216591 | Product #002 | TE Code: AP
Applicant: ASPIRO PHARMA LTD
Approved: Jul 6, 2022 | RLD: No | RS: No | Type: RX